FAERS Safety Report 11701526 (Version 3)
Quarter: 2015Q4

REPORT INFORMATION
  Report Type: Spontaneous
  Country: DK (occurrence: DK)
  Receive Date: 20151105
  Receipt Date: 20151211
  Transmission Date: 20160304
  Serious: Yes (Hospitalization)
  Sender: FDA-Public Use
  Company Number: DK-PFIZER INC-2015370824

PATIENT
  Age: 55 Year
  Sex: Female

DRUGS (11)
  1. AMLODIPINE BESILATE [Suspect]
     Active Substance: AMLODIPINE BESYLATE
     Dosage: UNK, UNKNOWN
     Route: 065
     Dates: end: 20151002
  2. PARACETAMOL [Suspect]
     Active Substance: ACETAMINOPHEN
     Dosage: 1000 MG, 4X/DAY
     Route: 065
     Dates: end: 20151002
  3. ENALAPRIL [Suspect]
     Active Substance: ENALAPRIL
     Dosage: 20 MG, UNK
     Route: 065
     Dates: end: 20151002
  4. OMEPRAZOLE. [Suspect]
     Active Substance: OMEPRAZOLE
     Dosage: 20 MG, UNK
     Route: 065
     Dates: end: 20151002
  5. SYMBICORT [Suspect]
     Active Substance: BUDESONIDE\FORMOTEROL FUMARATE DIHYDRATE
     Dosage: UNK, UNKNOWN
     Route: 065
     Dates: end: 20151002
  6. VENTOLINE /00139501/ [Suspect]
     Active Substance: ALBUTEROL
     Dosage: UNK, UNKNOWN
     Route: 065
     Dates: end: 20151002
  7. IBUMETIN [Suspect]
     Active Substance: IBUPROFEN
     Dosage: 600 MG, 3X/DAY
     Route: 065
     Dates: end: 20151002
  8. KLOPOXID TAKEDA [Suspect]
     Active Substance: CHLORDIAZEPOXIDE
     Dosage: UNK, AS NEEDED
     Route: 065
     Dates: end: 20151002
  9. MORPHINE SULFATE. [Suspect]
     Active Substance: MORPHINE SULFATE
     Dosage: 20 MG, 2X/DAY
     Route: 065
     Dates: end: 20151002
  10. DOLOL /00599201/ [Suspect]
     Active Substance: TRAMADOL
     Dosage: 50 MG, 3X/DAY
     Route: 065
     Dates: end: 20151002
  11. MALFIN [Suspect]
     Active Substance: MORPHINE SULFATE
     Dosage: UNK, UNKNOWN
     Route: 065
     Dates: end: 20151002

REACTIONS (3)
  - Swollen tongue [Unknown]
  - Dyspnoea [Unknown]
  - Anaphylactic reaction [Unknown]

NARRATIVE: CASE EVENT DATE: 20151002
